FAERS Safety Report 9769453 (Version 3)
Quarter: 2014Q1

REPORT INFORMATION
  Report Type: Report from Study
  Country: US (occurrence: US)
  Receive Date: 20131218
  Receipt Date: 20140113
  Transmission Date: 20141002
  Serious: Yes (Death)
  Sender: FDA-Public Use
  Company Number: PHEH2013US025947

PATIENT
  Age: 68 Year
  Sex: Female

DRUGS (4)
  1. SANDOSTATIN LAR DEPOT [Suspect]
     Indication: DIARRHOEA
     Dosage: 30 MG, UNK
     Route: 030
  2. SANDOSTATIN LAR DEPOT [Suspect]
     Indication: OFF LABEL USE
  3. SANDOSTATIN [Suspect]
     Indication: DIARRHOEA
     Dosage: 50 UG, BID
     Route: 058
     Dates: start: 20131029, end: 20131030
  4. SANDOSTATIN [Suspect]
     Indication: OFF LABEL USE
     Dosage: 30 UG, UNK
     Route: 058

REACTIONS (2)
  - Malignant neoplasm progression [Fatal]
  - Drug ineffective [Unknown]
